FAERS Safety Report 8592873-6 (Version None)
Quarter: 2012Q3

REPORT INFORMATION
  Report Type: 
  Country: None (occurrence: None)
  Receive Date: 20120814
  Receipt Date: 20120802
  Transmission Date: 20120928
  Serious: Yes (Hospitalization)
  Sender: FDA-Public Use
  Company Number: DE-ROCHE-1097006

PATIENT
  Sex: Male
  Weight: 64.6 kg

DRUGS (4)
  1. FLUOROURACIL [Suspect]
     Indication: COLON CANCER
     Dosage: LAST DOSE PRIOR TO SAE: 31/JUL/2012
     Dates: start: 20120521
  2. AVASTIN [Suspect]
     Indication: COLON CANCER
     Dosage: LAST DOSE 5MG/KG, LAST DOSE PRIOR TO SAE 31/JUL/2012
     Dates: start: 20120521
  3. OXALIPLATIN [Suspect]
     Indication: COLON CANCER
     Dosage: LAST DOSE PRIOR TO SAE: 31/JUL/2012, LAST DOE ADMINISTERED: 85 MG/ME2
     Dates: start: 20120521
  4. LEUCOVORIN CALCIUM [Suspect]
     Indication: COLON CANCER
     Dosage: LAST DOSE PRIOR TO SAE: 31/JUL/2012, LAST DOSE ADMINISTERED: 200 MG/ME2
     Dates: start: 20120521

REACTIONS (1)
  - MENTAL DISORDER DUE TO A GENERAL MEDICAL CONDITION [None]
